FAERS Safety Report 8635057 (Version 4)
Quarter: 2013Q1

REPORT INFORMATION
  Report Type: Spontaneous
  Country: JP (occurrence: None)
  Receive Date: 20120613
  Receipt Date: 20121031
  Transmission Date: 20140127
  Serious: Yes (Hospitalization)
  Sender: FDA-Public Use
  Company Number: DSJ-2011-24434

PATIENT
  Age: 40 Year
  Sex: Female

DRUGS (4)
  1. OLMESARTAN MEDOXOMIL [Suspect]
     Indication: BLOOD PRESSURE MANAGEMENT
     Route: 048
  2. OLMESARTAN MEDOXOMIL [Suspect]
     Indication: NEPHROPROTECTIVE THERAPY
     Route: 048
  3. ADALAT (NIFEDIPINE) (NIFEDIPINE) [Concomitant]
  4. PREDNISOLONE [Concomitant]

REACTIONS (14)
  - Maternal exposure during pregnancy [None]
  - Dizziness [None]
  - Oligohydramnios [None]
  - Platelet count decreased [None]
  - Aspartate aminotransferase increased [None]
  - Alanine aminotransferase increased [None]
  - Contraindication to medical treatment [None]
  - Potter^s syndrome [None]
  - Pregnancy [None]
  - Hypotension [None]
  - Pre-eclampsia [None]
  - Dizziness [None]
  - Cerebral infarction [None]
  - Stillbirth [None]
